FAERS Safety Report 11679913 (Version 2)
Quarter: 2015Q4

REPORT INFORMATION
  Report Type: Spontaneous
  Country: US (occurrence: US)
  Receive Date: 20151027
  Receipt Date: 20151104
  Transmission Date: 20160304
  Serious: No
  Sender: FDA-Public Use
  Company Number: US-ELI_LILLY_AND_COMPANY-US201009000743

PATIENT
  Age: 82 Year
  Sex: Female

DRUGS (2)
  1. FORTEO [Suspect]
     Active Substance: TERIPARATIDE
     Dosage: UNK, UNKNOWN
     Route: 065
  2. FORTEO [Suspect]
     Active Substance: TERIPARATIDE
     Dosage: UNK, UNKNOWN
     Route: 065

REACTIONS (13)
  - Rash pruritic [Unknown]
  - Headache [Unknown]
  - Measles [Recovering/Resolving]
  - Burning sensation [Unknown]
  - Skin lesion [Recovering/Resolving]
  - Discomfort [Unknown]
  - Rash erythematous [Unknown]
  - Mumps [Recovering/Resolving]
  - Weight decreased [Unknown]
  - Eating disorder [Unknown]
  - Rash [Unknown]
  - Rash papular [Unknown]
  - Pain [Unknown]
